FAERS Safety Report 5325521-9 (Version None)
Quarter: 2007Q2

REPORT INFORMATION
  Report Type: 
  Country: None (occurrence: None)
  Receive Date: 20070515
  Receipt Date: 20070507
  Transmission Date: 20071010
  Serious: Yes (Hospitalization, Other)
  Sender: FDA-Public Use
  Company Number: DE-SANOFI-SYNTHELABO-F01200700393

PATIENT
  Sex: Male

DRUGS (12)
  1. L-THYROXIN [Concomitant]
     Dates: start: 19960615
  2. AMLODIPINE [Concomitant]
     Dates: start: 20070215, end: 20070307
  3. SIMVASTATIN [Concomitant]
     Dates: start: 20060815, end: 20070306
  4. NEBIVOLOL [Concomitant]
     Dates: start: 20060815
  5. TETRAM [Concomitant]
     Dates: start: 20030315, end: 20070215
  6. XIPAMID [Concomitant]
     Dates: start: 20060515, end: 20060815
  7. ENALAPRIL [Concomitant]
     Dates: start: 20060515, end: 20070215
  8. ENALAPRIL [Concomitant]
     Dates: start: 20070215, end: 20070307
  9. MARCUMAR [Concomitant]
     Dates: start: 20060815
  10. CAPECITABINE [Suspect]
     Dosage: 4500 MG
     Route: 048
     Dates: start: 20060905
  11. BEVACIZUMAB [Suspect]
     Dosage: 862.5 MG
     Route: 042
  12. OXALIPLATIN [Suspect]
     Indication: COLORECTAL CANCER
     Dosage: 292.5 MG
     Route: 042

REACTIONS (2)
  - HYPERTENSION [None]
  - NEPHROTIC SYNDROME [None]
